FAERS Safety Report 9099109 (Version 2)
Quarter: 2013Q1

REPORT INFORMATION
  Report Type: Spontaneous
  Country: BR (occurrence: BR)
  Receive Date: 20130214
  Receipt Date: 20130318
  Transmission Date: 20140127
  Serious: Yes (Other)
  Sender: FDA-Public Use
  Company Number: BR-ROCHE-1191096

PATIENT
  Sex: Male
  Weight: 80 kg

DRUGS (4)
  1. LUCENTIS [Suspect]
     Indication: PRODUCT USED FOR UNKNOWN INDICATION
     Route: 050
     Dates: start: 201211
  2. LUCENTIS [Suspect]
     Route: 050
     Dates: start: 201212
  3. METFORMIN HYDROCHLORIDE [Concomitant]
     Indication: DIABETES MELLITUS
     Route: 065
     Dates: start: 2008
  4. GLIBENCLAMIDE [Concomitant]
     Indication: DIABETES MELLITUS
     Route: 065
     Dates: start: 2008

REACTIONS (2)
  - Macular oedema [Not Recovered/Not Resolved]
  - Renal impairment [Not Recovered/Not Resolved]
